FAERS Safety Report 21546806 (Version 1)
Quarter: 2022Q4

REPORT INFORMATION
  Report Type: Report from Study
  Country: DE (occurrence: DE)
  Receive Date: 20221103
  Receipt Date: 20221103
  Transmission Date: 20230113
  Serious: Yes (Other)
  Sender: FDA-Public Use
  Company Number: DE-SUN PHARMACEUTICAL INDUSTRIES LTD-2022RR-357187

PATIENT
  Age: 80 Year
  Sex: Male

DRUGS (6)
  1. SONIDEGIB [Suspect]
     Active Substance: SONIDEGIB
     Indication: Basal cell carcinoma
     Dosage: 200 MILLIGRAM, DAILY
     Route: 048
     Dates: start: 20210128, end: 20220619
  2. RAMIPRIL [Concomitant]
     Active Substance: RAMIPRIL
     Indication: Pre-existing disease
     Dosage: 5 MILLIGRAM, BID
     Route: 048
  3. BISOPROLOL [Concomitant]
     Active Substance: BISOPROLOL
     Indication: Pre-existing disease
     Dosage: 5 MILLIGRAM, DAILY
     Route: 048
  4. AMLODIPINE BESYLATE [Concomitant]
     Active Substance: AMLODIPINE BESYLATE
     Indication: Pre-existing disease
     Dosage: 5 MILLIGRAM, DAILY
     Route: 048
  5. SODIUM BICARBONATE [Concomitant]
     Active Substance: SODIUM BICARBONATE
     Indication: Pre-existing disease
     Dosage: 1 GRAM, DAILY
     Route: 048
  6. TORSEMIDE [Concomitant]
     Active Substance: TORSEMIDE
     Indication: Pre-existing disease
     Dosage: 20 MILLIGRAM, DAILY
     Route: 048

REACTIONS (7)
  - Hyperkalaemia [Unknown]
  - Renal failure [Unknown]
  - Fatigue [Not Recovered/Not Resolved]
  - Hypocalcaemia [Unknown]
  - Haemoglobin [Unknown]
  - Myoglobin urine [Unknown]
  - Urinary casts [Unknown]

NARRATIVE: CASE EVENT DATE: 20220620
